FAERS Safety Report 7473311-3 (Version None)
Quarter: 2011Q2

REPORT INFORMATION
  Report Type: 
  Country: None (occurrence: None)
  Receive Date: 20110503
  Receipt Date: 20110420
  Transmission Date: 20111010
  Serious: Yes (Other)
  Sender: FDA-Public Use
  Company Number: 894632

PATIENT
  Age: 80 Year
  Sex: Male

DRUGS (1)
  1. HEPARIN SODIUM INJECTION [Suspect]
     Indication: PRODUCT USED FOR UNKNOWN INDICATION
     Dosage: 3X THAN THE USUAL DOSES,

REACTIONS (4)
  - CATHETER SITE HAEMORRHAGE [None]
  - NAUSEA [None]
  - RASH [None]
  - VOMITING [None]
